FAERS Safety Report 19536684 (Version 6)
Quarter: 2023Q1

REPORT INFORMATION
  Report Type: Spontaneous
  Country: IT (occurrence: IT)
  Receive Date: 20210713
  Receipt Date: 20230104
  Transmission Date: 20230417
  Serious: Yes (Hospitalization, Other)
  Sender: FDA-Public Use
  Company Number: IT-BIOMARINAP-IT-2021-137444

PATIENT

DRUGS (7)
  1. LARONIDASE [Suspect]
     Active Substance: LARONIDASE
     Indication: Mucopolysaccharidosis I
     Dosage: 3 DF, QW (3 VIALS / CYCLE (1500 UNITS QW)
     Route: 041
     Dates: start: 20140717, end: 20210921
  2. LARONIDASE [Suspect]
     Active Substance: LARONIDASE
     Dosage: 4 DF, QW
     Route: 041
     Dates: start: 20221122
  3. LASIX [Concomitant]
     Active Substance: FUROSEMIDE
     Indication: Product used for unknown indication
     Dosage: UNK MILLIGRAM
  4. RISPERIDONE [Concomitant]
     Active Substance: RISPERIDONE
     Indication: Irritability
     Dosage: 0.25 MG AT MORNING AND 0.50 MG IN THE EVENING
  5. MELAMIL [Concomitant]
     Indication: Insomnia
     Dosage: 6 DROP, QD (1.5 ML IN THE EVENING)
  6. SPIRONOLACTONE [Concomitant]
     Active Substance: SPIRONOLACTONE
     Indication: Product used for unknown indication
     Dosage: UNK
  7. ALDACTONE [Concomitant]
     Active Substance: SPIRONOLACTONE
     Indication: Product used for unknown indication
     Dosage: UNK

REACTIONS (11)
  - Mitral valve stenosis [Unknown]
  - Upper airway obstruction [Unknown]
  - Intracranial pressure increased [Unknown]
  - Vomiting [Unknown]
  - Tonsillar hypertrophy [Unknown]
  - Adenoidal hypertrophy [Unknown]
  - Sleep apnoea syndrome [Unknown]
  - Tooth disorder [Unknown]
  - Oropharyngeal pain [Unknown]
  - Pyrexia [Recovered/Resolved]
  - Pyrexia [Unknown]

NARRATIVE: CASE EVENT DATE: 20210401
